FAERS Safety Report 5775120-X (Version None)
Quarter: 2008Q2

REPORT INFORMATION
  Report Type: 
  Country: None (occurrence: None)
  Receive Date: 20080616
  Receipt Date: 20080616
  Transmission Date: 20081010
  Serious: No
  Sender: FDA-Public Use
  Company Number: None

PATIENT
  Age: 70 Year
  Sex: Female
  Weight: 60.3284 kg

DRUGS (1)
  1. LUNESTA [Suspect]
     Indication: SLEEP DISORDER
     Dosage: 1 TABLET NIGHTLY PO
     Route: 048
     Dates: start: 20080201, end: 20080331

REACTIONS (8)
  - CHEST PAIN [None]
  - DYSGEUSIA [None]
  - DYSPNOEA [None]
  - ILL-DEFINED DISORDER [None]
  - OESOPHAGEAL DISORDER [None]
  - OESOPHAGEAL SPASM [None]
  - PALPITATIONS [None]
  - VOMITING [None]
